FAERS Safety Report 7044052-1 (Version None)
Quarter: 2010Q4

REPORT INFORMATION
  Report Type: 
  Country: None (occurrence: None)
  Receive Date: 20101013
  Receipt Date: 20101001
  Transmission Date: 20110411
  Serious: Yes (Other)
  Sender: FDA-Public Use
  Company Number: CO-PFIZER INC-2010091752

PATIENT
  Age: 60 Year
  Sex: Female

DRUGS (8)
  1. ZOLOFT [Suspect]
     Indication: DEPRESSION
     Dosage: 50 MG, 1X/DAY
     Route: 048
     Dates: start: 20100310
  2. XANAX [Suspect]
     Indication: NERVOUSNESS
     Dosage: 0.5 MG, 1X/DAY
     Route: 048
     Dates: start: 19890101
  3. BETALOC [Concomitant]
     Dosage: UNK
  4. BI-EUGLUCON [Concomitant]
     Indication: DIABETES MELLITUS
     Dosage: 500 MG, UNK
     Dates: start: 19930101
  5. OMEPRAZOLE [Concomitant]
     Indication: GASTRITIS
  6. UNIPRIL [Concomitant]
     Indication: HYPERTENSION
     Dosage: UNK
     Dates: start: 20020101
  7. CARDIOASPIRINE [Concomitant]
     Dosage: UNK
     Dates: start: 20070101
  8. ACETAMINOPHEN [Concomitant]
     Indication: PAIN
     Dosage: UNK
     Dates: start: 20000101

REACTIONS (12)
  - BONE EROSION [None]
  - DEMENTIA ALZHEIMER'S TYPE [None]
  - DEPRESSION [None]
  - DIABETES MELLITUS [None]
  - DRY MOUTH [None]
  - FEAR [None]
  - HEART VALVE REPLACEMENT [None]
  - HYPERTENSION [None]
  - NERVOUSNESS [None]
  - OSTEOPOROSIS [None]
  - POLYMYALGIA RHEUMATICA [None]
  - SCOLIOSIS [None]
